FAERS Safety Report 20235717 (Version 1)
Quarter: 2021Q4

REPORT INFORMATION
  Report Type: Spontaneous
  Country: US (occurrence: US)
  Receive Date: 20211228
  Receipt Date: 20211228
  Transmission Date: 20220303
  Serious: No
  Sender: FDA-Public Use
  Company Number: US-TEVA-2021-US-1987980

PATIENT
  Sex: Male

DRUGS (2)
  1. TESTOSTERONE CYPIONATE [Suspect]
     Active Substance: TESTOSTERONE CYPIONATE
     Dosage: TESTOSTERONE CYPIONATE AND ENANTHATE 1:2
     Route: 065
  2. TESTOSTERONE ENANTHATE [Suspect]
     Active Substance: TESTOSTERONE ENANTHATE
     Route: 065

REACTIONS (4)
  - Drug ineffective [Unknown]
  - Product tampering [Unknown]
  - Product container seal issue [Unknown]
  - Incorrect dose administered [Unknown]
